FAERS Safety Report 5911468-3 (Version None)
Quarter: 2008Q4

REPORT INFORMATION
  Report Type: 
  Country: None (occurrence: None)
  Receive Date: 20081007
  Receipt Date: 20080925
  Transmission Date: 20090506
  Serious: Yes (Other)
  Sender: FDA-Public Use
  Company Number: US-PFIZER INC-2008082711

PATIENT
  Sex: Female
  Weight: 146.1 kg

DRUGS (3)
  1. CHANTIX [Suspect]
     Indication: SMOKING CESSATION THERAPY
     Dates: start: 20080901, end: 20080924
  2. AVANDAMET [Concomitant]
     Indication: DIABETES MELLITUS
  3. BENICAR [Concomitant]
     Indication: BLOOD CHOLESTEROL

REACTIONS (2)
  - RASH [None]
  - SWELLING FACE [None]
